FAERS Safety Report 13742240 (Version 1)
Quarter: 2017Q3

REPORT INFORMATION
  Report Type: Spontaneous
  Country: JP (occurrence: JP)
  Receive Date: 20170711
  Receipt Date: 20170711
  Transmission Date: 20171127
  Serious: Yes (Life-Threatening, Hospitalization)
  Sender: FDA-Public Use
  Company Number: PHHY2010JP76631

PATIENT
  Age: 86 Year
  Sex: Female
  Weight: 56 kg

DRUGS (7)
  1. RENIVACE [Suspect]
     Active Substance: ENALAPRIL
     Dosage: 10 MG, UNK
     Dates: end: 20101010
  2. MUCOSTA [Concomitant]
     Active Substance: REBAMIPIDE
     Dosage: 100 MG, UNK
  3. MIKELAN LA 2% [Suspect]
     Active Substance: CARTEOLOL HYDROCHLORIDE
     Indication: GLAUCOMA
     Dosage: 1 GTT, QD
     Route: 047
     Dates: start: 200912, end: 201010
  4. BAYASPIRIN [Concomitant]
     Active Substance: ASPIRIN
     Dosage: 100 MG, UNK
  5. NORVASC [Suspect]
     Active Substance: AMLODIPINE BESYLATE
     Dosage: 5 MG, QD
     Route: 048
  6. TAPROS /06186201/ [Concomitant]
  7. FLUITRAN [Concomitant]
     Active Substance: TRICHLORMETHIAZIDE
     Dosage: 1 MG, UNK

REACTIONS (14)
  - Hypopnoea [Recovered/Resolved]
  - Heart rate decreased [Recovered/Resolved]
  - Bromosulphthalein test abnormal [Recovered/Resolved]
  - Renal disorder [Recovered/Resolved]
  - Dyspnoea [Recovered/Resolved]
  - White blood cell count increased [Recovered/Resolved]
  - Liver disorder [Recovered/Resolved]
  - Shock [Recovered/Resolved]
  - C-reactive protein increased [Recovered/Resolved]
  - Blood chloride increased [Recovered/Resolved]
  - Aspartate aminotransferase increased [Recovered/Resolved]
  - Bradycardia [Recovered/Resolved]
  - Blood pressure decreased [Recovered/Resolved]
  - Alanine aminotransferase increased [Recovered/Resolved]

NARRATIVE: CASE EVENT DATE: 201010
